FAERS Safety Report 19985986 (Version 1)
Quarter: 2021Q4

REPORT INFORMATION
  Report Type: Spontaneous
  Country: GB (occurrence: GB)
  Receive Date: 20211022
  Receipt Date: 20211022
  Transmission Date: 20220303
  Serious: Yes (Other)
  Sender: FDA-Public Use
  Company Number: GB-NOVARTISPH-NVSC2021GB238200

PATIENT
  Age: 5 Year
  Sex: Female

DRUGS (16)
  1. CYCLOPHOSPHAMIDE [Suspect]
     Active Substance: CYCLOPHOSPHAMIDE
     Indication: Primitive neuroectodermal tumour
     Dosage: 4 DF (4 GRAM PER SQUARE METRE)
     Route: 042
     Dates: start: 20110718, end: 201204
  2. METHOTREXATE [Suspect]
     Active Substance: METHOTREXATE
     Indication: Primitive neuroectodermal tumour
     Dosage: 8 DF (8 GRAM PER SQUARE METRE)
     Route: 042
     Dates: start: 20110718, end: 201204
  3. CARBOPLATIN [Suspect]
     Active Substance: CARBOPLATIN
     Indication: Primitive neuroectodermal tumour
     Dosage: 800 MG/M2
     Route: 042
     Dates: start: 20110718, end: 201204
  4. ETOPOSIDE [Suspect]
     Active Substance: ETOPOSIDE
     Indication: Primitive neuroectodermal tumour
     Dosage: 2.4 DF (2.4 GRAM PER SQUARE METRE)
     Route: 042
     Dates: start: 20110718, end: 201204
  5. THIOTEPA [Suspect]
     Active Substance: THIOTEPA
     Indication: Primitive neuroectodermal tumour
     Dosage: 1800 MG/M2
     Route: 065
     Dates: start: 20110718, end: 201204
  6. VINCRISTINE [Suspect]
     Active Substance: VINCRISTINE
     Indication: Primitive neuroectodermal tumour
     Dosage: 4.5 MG/M2
     Route: 042
     Dates: start: 20110718, end: 201204
  7. CLOBAZAM [Concomitant]
     Active Substance: CLOBAZAM
     Indication: Product used for unknown indication
     Dosage: 15 MG, QD (QHS)
     Route: 065
  8. IBUPROFEN [Concomitant]
     Active Substance: IBUPROFEN
     Indication: Product used for unknown indication
     Dosage: UNK, PRN
     Route: 065
  9. KEPPRA [Concomitant]
     Active Substance: LEVETIRACETAM
     Indication: Product used for unknown indication
     Dosage: 750 MG, BID
     Route: 065
  10. LACTULOSE [Concomitant]
     Active Substance: LACTULOSE
     Indication: Product used for unknown indication
     Dosage: UNK, PRN
     Route: 065
  11. LANSOPRAZOLE [Concomitant]
     Active Substance: LANSOPRAZOLE
     Indication: Product used for unknown indication
     Dosage: 30 MG, QD
     Route: 065
  12. LEVOTHYROXINE [Concomitant]
     Active Substance: LEVOTHYROXINE
     Indication: Product used for unknown indication
     Dosage: 100 UG, QD
     Route: 065
  13. MELATONIN [Concomitant]
     Active Substance: MELATONIN
     Indication: Product used for unknown indication
     Dosage: 3 MG, QD (QHS)
     Route: 065
  14. ESTRADIOL [Concomitant]
     Active Substance: ESTRADIOL
     Indication: Product used for unknown indication
     Dosage: UNK, QD (QHS)
     Route: 065
  15. ACETAMINOPHEN [Concomitant]
     Active Substance: ACETAMINOPHEN
     Indication: Product used for unknown indication
     Dosage: UNK, PRN
     Route: 065
  16. SOMATROPIN [Concomitant]
     Active Substance: SOMATROPIN
     Indication: Product used for unknown indication
     Dosage: 1.4 MG, QD (QHS)
     Route: 065

REACTIONS (2)
  - Endocrine disorder [Unknown]
  - Cognitive disorder [Unknown]
